FAERS Safety Report 5056035-1 (Version None)
Quarter: 2006Q3

REPORT INFORMATION
  Report Type: 
  Country: None (occurrence: None)
  Receive Date: 20060717
  Receipt Date: 20060717
  Transmission Date: 20061208
  Serious: Yes (Hospitalization, Disabling)
  Sender: FDA-Public Use
  Company Number: None

PATIENT
  Age: 81 Year
  Sex: Male
  Weight: 110 kg

DRUGS (18)
  1. MOXIFLOXACIN HCL [Suspect]
     Indication: PNEUMONIA
     Dosage: 400MG  QD  IV
     Route: 042
     Dates: start: 20060523, end: 20060523
  2. MOXIFLOXACIN HCL [Suspect]
     Indication: PNEUMONIA
     Dosage: 400MG  QD  PO
     Route: 048
     Dates: start: 20060524, end: 20060529
  3. ALBUTEROL / IPRATROPINE [Concomitant]
  4. ALLOPURINOL [Concomitant]
  5. BRIMONIDINE TARTRATE [Concomitant]
  6. FLUNISOLIDE [Concomitant]
  7. FUROSEMIDE [Concomitant]
  8. GLYBURIDE [Concomitant]
  9. SYNTHROID [Concomitant]
  10. LISINOPRIL [Concomitant]
  11. METFORMIN HYDROCHLORIDE [Concomitant]
  12. METOPROLOL TARTRATE [Concomitant]
  13. NYSTATIN [Concomitant]
  14. QUININE SULFATE [Concomitant]
  15. SIMVASTATIN [Concomitant]
  16. TAMSULOSIN HCL [Concomitant]
  17. TRAZODONE HCL [Concomitant]
  18. COUMADIN [Concomitant]

REACTIONS (12)
  - DYSPHAGIA [None]
  - DYSPHONIA [None]
  - DYSPNOEA [None]
  - HYPOAESTHESIA [None]
  - LARYNGEAL OEDEMA [None]
  - LEUKOCYTOCLASTIC VASCULITIS [None]
  - LOCAL SWELLING [None]
  - NECK PAIN [None]
  - OEDEMA PERIPHERAL [None]
  - PAIN IN EXTREMITY [None]
  - PHARYNGOLARYNGEAL PAIN [None]
  - RASH [None]
